FAERS Safety Report 4548906-7 (Version None)
Quarter: 2004Q4

REPORT INFORMATION
  Report Type: 
  Country: None (occurrence: None)
  Receive Date: 20041227
  Receipt Date: 20041005
  Transmission Date: 20050328
  Serious: No
  Sender: FDA-Public Use
  Company Number: 04P-163-0276272-00

PATIENT
  Age: 71 Year
  Sex: Female
  Weight: 56.6996 kg

DRUGS (9)
  1. HUMIRA [Suspect]
     Indication: RHEUMATOID ARTHRITIS
     Dosage: 40 MG, 1 IN 2 WK, SUBCUTANEOUS
     Route: 058
     Dates: start: 20040801, end: 20040801
  2. HUMIRA [Suspect]
     Indication: RHEUMATOID ARTHRITIS
     Dosage: 40 MG, 1 IN 2 WK, SUBCUTANEOUS
     Route: 058
     Dates: start: 20040901
  3. LEVOTHYROXINE SODIUM [Concomitant]
  4. MULTI-VITAMINS [Concomitant]
  5. CELECOXIB [Concomitant]
  6. ALENDRONATE SODIUM [Concomitant]
  7. TOCOPHEROL CONCENTRATE CAP [Concomitant]
  8. ASCORBIC ACID [Concomitant]
  9. CALCIUM CARBONATE [Concomitant]

REACTIONS (2)
  - DIPLOPIA [None]
  - INJECTION SITE HAEMORRHAGE [None]
